FAERS Safety Report 8274972-1 (Version None)
Quarter: 2012Q2

REPORT INFORMATION
  Report Type: 
  Country: None (occurrence: None)
  Receive Date: 20120411
  Receipt Date: 20120403
  Transmission Date: 20120825
  Serious: Yes (Hospitalization)
  Sender: FDA-Public Use
  Company Number: JP-TEVA-323607ISR

PATIENT
  Sex: Female
  Weight: 59 kg

DRUGS (19)
  1. TREANDA [Suspect]
     Dosage: 120 MG/M2;
     Route: 042
     Dates: start: 20110218, end: 20110219
  2. REBAMIPIDE [Concomitant]
     Indication: PROPHYLAXIS
     Dosage: 300 MILLIGRAM;
  3. ACYCLOVIR [Concomitant]
     Indication: PROPHYLAXIS
     Dosage: 200 MILLIGRAM;
  4. FAMOTIDINE [Concomitant]
     Indication: PROPHYLAXIS
     Dosage: 20 MILLIGRAM;
  5. GRANISETRON HCL [Concomitant]
     Dosage: 3 MILLIGRAM;
     Dates: start: 20110530, end: 20110531
  6. TREANDA [Suspect]
     Dosage: 90 MG/M2;
     Route: 042
     Dates: start: 20110530, end: 20110531
  7. MAGNESIUM OXIDE [Concomitant]
     Indication: PROPHYLAXIS
     Dosage: 1500 MILLIGRAM;
  8. GRANISETRON HCL [Concomitant]
     Dosage: 3 MILLIGRAM;
     Dates: start: 20110218, end: 20110219
  9. GRANISETRON HCL [Concomitant]
     Dosage: 3 MILLIGRAM;
     Dates: start: 20110509, end: 20110510
  10. TREANDA [Suspect]
     Indication: B-CELL LYMPHOMA
     Dosage: 120 MG/M2;
     Route: 042
     Dates: start: 20110128, end: 20110129
  11. GRANISETRON HCL [Concomitant]
     Dosage: 3 MILLIGRAM;
     Dates: start: 20110629, end: 20110630
  12. POVIDONE-IODINE (FORMULA 47) [Concomitant]
     Indication: PROPHYLAXIS
     Dates: end: 20110630
  13. GRANISETRON HCL [Concomitant]
     Indication: PROPHYLAXIS
     Dosage: 3 MILLIGRAM;
     Dates: start: 20110128, end: 20110129
  14. TREANDA [Suspect]
     Dosage: 90 MG/M2;
     Route: 042
     Dates: start: 20110629, end: 20110630
  15. TREANDA [Suspect]
     Dosage: 90 MG/M2;
     Route: 042
     Dates: start: 20110330, end: 20110331
  16. METOCLOPRAMIDE [Concomitant]
     Indication: PROPHYLAXIS
     Dates: start: 20110205, end: 20110222
  17. GRANISETRON HCL [Concomitant]
     Dosage: 3 MILLIGRAM;
     Dates: start: 20110330, end: 20110331
  18. TREANDA [Suspect]
     Dosage: 90 MG/M2;
     Route: 042
     Dates: start: 20110509, end: 20110510
  19. SULFAMETHOXAZOLE + TRIMETHOPRIM [Concomitant]
     Indication: PROPHYLAXIS

REACTIONS (3)
  - AMYLASE INCREASED [None]
  - NEUTROPHIL COUNT DECREASED [None]
  - LYMPHOCYTE COUNT DECREASED [None]
